FAERS Safety Report 17547928 (Version 1)
Quarter: 2020Q1

REPORT INFORMATION
  Report Type: Spontaneous
  Country: US (occurrence: US)
  Receive Date: 20200316
  Receipt Date: 20200316
  Transmission Date: 20200409
  Serious: No
  Sender: FDA-Public Use
  Company Number: US-GLAXOSMITHKLINE-US2020041894

PATIENT
  Sex: Female

DRUGS (1)
  1. NUCALA [Suspect]
     Active Substance: MEPOLIZUMAB
     Indication: ASTHMA
     Dosage: 100 MG, CYC
     Route: 042
     Dates: start: 201909

REACTIONS (5)
  - Wheezing [Unknown]
  - Dyspnoea [Unknown]
  - Drug ineffective [Unknown]
  - Eosinophil count increased [Unknown]
  - Viral infection [Recovered/Resolved]
